FAERS Safety Report 6718386-1 (Version None)
Quarter: 2010Q2

REPORT INFORMATION
  Report Type: 
  Country: None (occurrence: None)
  Receive Date: 20100510
  Receipt Date: 20100506
  Transmission Date: 20101027
  Serious: Yes (Other)
  Sender: FDA-Public Use
  Company Number: US-ROCHE-674651

PATIENT
  Sex: Male
  Weight: 63 kg

DRUGS (5)
  1. ACCUTANE [Suspect]
     Route: 048
     Dates: start: 20040301, end: 20040601
  2. ACCUTANE [Suspect]
     Route: 048
     Dates: start: 20040601, end: 20040701
  3. AMNESTEEM [Suspect]
     Route: 048
     Dates: start: 20040101, end: 20040301
  4. MINOCYCLINE HCL [Concomitant]
     Dates: start: 20031112
  5. ROSANIL [Concomitant]

REACTIONS (8)
  - BLOOD TRIGLYCERIDES INCREASED [None]
  - CROHN'S DISEASE [None]
  - DRY EYE [None]
  - GASTROINTESTINAL HAEMORRHAGE [None]
  - INFLAMMATORY BOWEL DISEASE [None]
  - INGROWING NAIL [None]
  - INTESTINAL OBSTRUCTION [None]
  - MELANOCYTIC NAEVUS [None]
